FAERS Safety Report 14157034 (Version 1)
Quarter: 2017Q4

REPORT INFORMATION
  Report Type: Spontaneous
  Country: US (occurrence: US)
  Receive Date: 20171103
  Receipt Date: 20171103
  Transmission Date: 20180321
  Serious: Yes (Other)
  Sender: FDA-Public Use
  Company Number: None

PATIENT
  Age: 73 Year
  Sex: Male
  Weight: 72 kg

DRUGS (5)
  1. I-THYROXINE [Concomitant]
  2. PREDNISONE. [Concomitant]
     Active Substance: PREDNISONE
  3. TAMSULOSIN [Concomitant]
     Active Substance: TAMSULOSIN
  4. VITAMIN D2 [Suspect]
     Active Substance: ERGOCALCIFEROL
     Indication: OSTEOPENIA
     Dosage: ?          QUANTITY:4 CAPSULE(S);OTHER FREQUENCY:ONE CAPSULE WEEKLY;?
     Route: 048
     Dates: start: 20171018, end: 20171025
  5. LIOTHYRONINE [Concomitant]
     Active Substance: LIOTHYRONINE

REACTIONS (4)
  - Fatigue [None]
  - Lethargy [None]
  - No reaction on previous exposure to drug [None]
  - Decreased appetite [None]

NARRATIVE: CASE EVENT DATE: 20171025
